FAERS Safety Report 18313257 (Version 2)
Quarter: 2020Q3

REPORT INFORMATION
  Report Type: Other
  Country: DE (occurrence: DE)
  Receive Date: 20200925
  Receipt Date: 20200930
  Transmission Date: 20201103
  Serious: Yes (Death)
  Sender: FDA-Public Use
  Company Number: DE-ROCHE-1678766

PATIENT

DRUGS (4)
  1. CYCLOPHOSPHAMIDE. [Suspect]
     Active Substance: CYCLOPHOSPHAMIDE
     Indication: ACQUIRED HAEMOPHILIA
     Dosage: 100 MG FOR { 60 KG, 150 MG FOR 60?100 KG, 200 MG FOR }100 KG) IN WEEKS 4 TO 6
     Route: 065
  2. PREDNISOLONE. [Suspect]
     Active Substance: PREDNISOLONE
     Indication: ACQUIRED HAEMOPHILIA
     Dosage: 75 MG FOR PATIENTS ,60 KG, 100 MG FOR 60?100 KG, 150MG FOR } 100 KG) IN WEEKS 1 TO 3.
     Route: 065
  3. RITUXIMAB. [Suspect]
     Active Substance: RITUXIMAB
     Indication: ACQUIRED HAEMOPHILIA
     Dosage: WEEK 7 TO 10
     Route: 042
  4. PREDNISOLONE. [Suspect]
     Active Substance: PREDNISOLONE
     Dosage: DESCENDING DAILY DOSES OF 50, 25, 20, 15, 10, 5MG FOR 1 WEEK EACH)
     Route: 065

REACTIONS (1)
  - Endocarditis [Fatal]
